FAERS Safety Report 9579391 (Version 1)
Quarter: 2013Q4

REPORT INFORMATION
  Report Type: Spontaneous
  Country: US (occurrence: US)
  Receive Date: 20131001
  Receipt Date: 20131001
  Transmission Date: 20140711
  Serious: No
  Sender: FDA-Public Use
  Company Number: US-AMGEN-USASP2013017733

PATIENT
  Age: 71 Year
  Sex: Female
  Weight: 83.9 kg

DRUGS (10)
  1. ENBREL [Suspect]
     Indication: PRODUCT USED FOR UNKNOWN INDICATION
     Dosage: 50 MG, QWK
     Route: 058
  2. METOPROLOL [Concomitant]
     Dosage: 25 MG, UNK
  3. LEVOTHYROXINE [Concomitant]
     Dosage: 100 MUG, UNK
  4. PREDNISONE [Concomitant]
     Dosage: 1 MG, UNK
  5. GLIPIZIDE [Concomitant]
     Dosage: 5 MG, UNK
  6. METHOTREXATE [Concomitant]
     Dosage: 2.5 MG, UNK
  7. FOLIC ACID [Concomitant]
     Dosage: UNK
  8. VITAMIN D                          /00107901/ [Concomitant]
     Dosage: 400 UNIT, UNK
  9. FISH OIL [Concomitant]
     Dosage: UNK
  10. BIOTIN [Concomitant]
     Dosage: 5 MG, UNK

REACTIONS (2)
  - Cyst [Unknown]
  - Erythema [Unknown]
